FAERS Safety Report 10456237 (Version 1)
Quarter: 2014Q3

REPORT INFORMATION
  Report Type: Spontaneous
  Country: US (occurrence: None)
  Receive Date: 20140822
  Receipt Date: 20140822
  Transmission Date: 20150326
  Serious: Yes (Other)
  Sender: FDA-Public Use
  Company Number: 1000067077

PATIENT
  Age: 57 Year
  Sex: Male

DRUGS (3)
  1. FETZIMA [Suspect]
     Active Substance: LEVOMILNACIPRAN HYDROCHLORIDE
     Indication: DEPRESSION
     Route: 048
     Dates: start: 20140501, end: 20140501
  2. LAMICTAL [Concomitant]
     Active Substance: LAMOTRIGINE
  3. LIPITOR(ATORVASTATIN CALCIUM)(ATORVASTATIN CALCIUM) [Concomitant]

REACTIONS (4)
  - Urine flow decreased [None]
  - Urinary hesitation [None]
  - Blood pressure increased [None]
  - Tinnitus [None]

NARRATIVE: CASE EVENT DATE: 20140501
